FAERS Safety Report 10040513 (Version 2)
Quarter: 2014Q2

REPORT INFORMATION
  Report Type: Spontaneous
  Country: IT (occurrence: IT)
  Receive Date: 20140327
  Receipt Date: 20140402
  Transmission Date: 20141212
  Serious: Yes (Hospitalization)
  Sender: FDA-Public Use
  Company Number: IT-RANBAXY-2014RR-79280

PATIENT
  Age: 67 Year
  Sex: Female

DRUGS (2)
  1. AMOXICILLIN/CLAVULANIC ACID [Suspect]
     Indication: INFLUENZA
     Dosage: 2 G, DAILY
     Route: 048
     Dates: start: 20140227, end: 20140305
  2. ENALAPRIL ACTAVIS [Concomitant]
     Indication: ESSENTIAL HYPERTENSION
     Dosage: 10 MG
     Route: 048

REACTIONS (2)
  - Generalised erythema [Recovered/Resolved]
  - Pruritus generalised [Recovered/Resolved]
